FAERS Safety Report 22322461 (Version 2)
Quarter: 2023Q2

REPORT INFORMATION
  Report Type: Report from Study
  Country: CA (occurrence: None)
  Receive Date: 20230516
  Receipt Date: 20230526
  Transmission Date: 20230721
  Serious: Yes (Other)
  Sender: FDA-Public Use
  Company Number: CA-Merck Healthcare KGaA-9401971

PATIENT
  Age: 7 Year
  Sex: Female
  Weight: 18 kg

DRUGS (1)
  1. SAIZEN [Suspect]
     Active Substance: SOMATROPIN
     Indication: Turner^s syndrome
     Route: 058
     Dates: start: 20200324

REACTIONS (6)
  - Coeliac disease [Unknown]
  - Weight decreased [Unknown]
  - Decreased appetite [Unknown]
  - Influenza [Unknown]
  - Vomiting [Unknown]
  - Diarrhoea [Unknown]
